FAERS Safety Report 7820571 (Version 2)
Quarter: 2013Q1

REPORT INFORMATION
  Report Type: Spontaneous
  Country: US (occurrence: US)
  Receive Date: 20110221
  Receipt Date: 20130211
  Transmission Date: 20140127
  Serious: Yes (Other)
  Sender: FDA-Public Use
  Company Number: US-ASTRAZENECA-2011SE08577

PATIENT
  Age: 54 Year
  Sex: Female

DRUGS (1)
  1. CRESTOR [Suspect]
     Indication: BLOOD CHOLESTEROL
     Route: 048

REACTIONS (4)
  - Myocardial infarction [Unknown]
  - Cardiac disorder [Unknown]
  - Drug ineffective [Unknown]
  - Blood cholesterol abnormal [Unknown]
